FAERS Safety Report 7294781-X (Version None)
Quarter: 2011Q1

REPORT INFORMATION
  Report Type: 
  Country: None (occurrence: None)
  Receive Date: 20110216
  Receipt Date: 20110209
  Transmission Date: 20110831
  Serious: Yes (Hospitalization)
  Sender: FDA-Public Use
  Company Number: FR-ASTELLAS-2011EU000653

PATIENT
  Sex: Male

DRUGS (7)
  1. VESICARE [Interacting]
     Dosage: 5 MG, UID/QD
     Route: 065
     Dates: start: 20110107
  2. INIPOMP [Concomitant]
     Dosage: UNK
     Route: 065
  3. ASPIRIN [Concomitant]
     Dosage: UNK
     Route: 065
  4. VESICARE [Suspect]
     Dosage: 5 MG, UID/QD
     Route: 065
     Dates: start: 20101109
  5. COZAAR [Concomitant]
     Dosage: UNK
     Route: 065
  6. XATRAL [Concomitant]
     Indication: BENIGN PROSTATIC HYPERPLASIA
     Dosage: UNK
     Route: 065
  7. PROSCAR [Concomitant]
     Indication: BENIGN PROSTATIC HYPERPLASIA
     Dosage: UNK
     Route: 065

REACTIONS (2)
  - DRUG INTERACTION [None]
  - PRESYNCOPE [None]
